FAERS Safety Report 8118030-5 (Version None)
Quarter: 2012Q1

REPORT INFORMATION
  Report Type: 
  Country: None (occurrence: None)
  Receive Date: 20120201
  Receipt Date: 20111220
  Transmission Date: 20120608
  Serious: Yes (Other)
  Sender: FDA-Public Use
  Company Number: 2011006322

PATIENT
  Age: 34 Year
  Sex: Male

DRUGS (5)
  1. ERYTHROMYCIN [Suspect]
     Dates: start: 20111129
  2. REYATAZ [Suspect]
     Dates: start: 20110817
  3. PARACETAMOL [Concomitant]
  4. TRUVADA [Concomitant]
  5. RITONAVIR [Concomitant]

REACTIONS (2)
  - JAUNDICE [None]
  - DRUG INTERACTION [None]
